FAERS Safety Report 6401037-3 (Version None)
Quarter: 2009Q4

REPORT INFORMATION
  Report Type: 
  Country: None (occurrence: None)
  Receive Date: 20091013
  Receipt Date: 20091013
  Transmission Date: 20100525
  Serious: No
  Sender: FDA-Public Use
  Company Number: None

PATIENT
  Sex: Male
  Weight: 88.4514 kg

DRUGS (2)
  1. ZICAM GEL SWABS ZINCUM GLUCONIUM 2X ZICAM LLC, A SUBSID. MATRIX [Suspect]
     Indication: INFLUENZA
     Dosage: ONE TUBE EVERY 4 HOURS NASAL
     Route: 045
     Dates: start: 20090415, end: 20090420
  2. ZICAM GEL SWABS ZINCUM GLUCONIUM 2X ZICAM LLC, A SUBSID. MATRIX [Suspect]
     Indication: NASOPHARYNGITIS
     Dosage: ONE TUBE EVERY 4 HOURS NASAL
     Route: 045
     Dates: start: 20090415, end: 20090420

REACTIONS (3)
  - ANOSMIA [None]
  - INFLUENZA [None]
  - NO THERAPEUTIC RESPONSE [None]
